FAERS Safety Report 5229145-3 (Version None)
Quarter: 2007Q1

REPORT INFORMATION
  Report Type: 
  Country: None (occurrence: None)
  Receive Date: 20061201
  Receipt Date: 20061013
  Transmission Date: 20070707
  Serious: No
  Sender: FDA-Public Use
  Company Number: US200610002534

PATIENT
  Age: 87 Year
  Sex: Male

DRUGS (2)
  1. CYMBALTA [Suspect]
     Indication: NEURALGIA
     Dosage: 30 MG UNK ORAL
     Route: 048
     Dates: start: 20061010
  2. LORAZEPAM [Concomitant]

REACTIONS (5)
  - ANOREXIA [None]
  - FALL [None]
  - LOSS OF CONSCIOUSNESS [None]
  - NAUSEA [None]
  - NERVOUSNESS [None]
